FAERS Safety Report 11433027 (Version 1)
Quarter: 2015Q3

REPORT INFORMATION
  Report Type: Spontaneous
  Country: US (occurrence: US)
  Receive Date: 20150829
  Receipt Date: 20150829
  Transmission Date: 20151125
  Serious: No
  Sender: FDA-Public Use
  Company Number: US-009507513-1508USA007176

PATIENT
  Sex: Male
  Weight: 84.35 kg

DRUGS (7)
  1. JANUVIA [Concomitant]
     Active Substance: SITAGLIPTIN PHOSPHATE
     Indication: DIABETES MELLITUS
     Dosage: UNKNOWN
  2. NIASPAN [Suspect]
     Active Substance: NIACIN
     Dosage: 1000 MG, QD
     Route: 048
     Dates: start: 201502, end: 201504
  3. NORVASC [Concomitant]
     Active Substance: AMLODIPINE BESYLATE
     Indication: HYPERTENSION
     Dosage: UNKNOWN
  4. CORGARD [Concomitant]
     Active Substance: NADOLOL
     Indication: HYPERTENSION
     Dosage: UNKNOWN
  5. NIASPAN [Suspect]
     Active Substance: NIACIN
     Indication: BLOOD CHOLESTEROL INCREASED
     Dosage: 2000 MG, QD
     Route: 048
     Dates: start: 2007, end: 201502
  6. MAXALT [Suspect]
     Active Substance: RIZATRIPTAN BENZOATE
     Indication: MIGRAINE
     Dosage: UNK, PRN
  7. GLIPIZIDE. [Concomitant]
     Active Substance: GLIPIZIDE
     Indication: DIABETES MELLITUS
     Dosage: UNKNOWN

REACTIONS (3)
  - Fatigue [Recovered/Resolved]
  - Liver function test abnormal [Recovered/Resolved]
  - Incorrect drug dosage form administered [Recovered/Resolved]

NARRATIVE: CASE EVENT DATE: 2014
